FAERS Safety Report 10028334 (Version 1)
Quarter: 2014Q1

REPORT INFORMATION
  Report Type: Spontaneous
  Country: CA (occurrence: CA)
  Receive Date: 20140321
  Receipt Date: 20140321
  Transmission Date: 20141002
  Serious: Yes (Hospitalization, Other)
  Sender: FDA-Public Use
  Company Number: CA-ASTRAZENECA-2014SE18306

PATIENT
  Age: 48 Year
  Sex: Male
  Weight: 136.1 kg

DRUGS (1)
  1. SEROQUEL [Suspect]
     Route: 048

REACTIONS (4)
  - Intentional overdose [Unknown]
  - Physical assault [Unknown]
  - Unresponsive to stimuli [Recovered/Resolved]
  - Somnolence [Unknown]
